FAERS Safety Report 9412707 (Version 2)
Quarter: 2013Q4

REPORT INFORMATION
  Report Type: Spontaneous
  Country: US (occurrence: US)
  Receive Date: 20130722
  Receipt Date: 20131007
  Transmission Date: 20140711
  Serious: Yes (Hospitalization, Other)
  Sender: FDA-Public Use
  Company Number: US-PFIZER INC-2013210350

PATIENT
  Age: 62 Year
  Sex: Female
  Weight: 100 kg

DRUGS (10)
  1. XALKORI [Suspect]
     Indication: NON-SMALL CELL LUNG CANCER
     Dosage: 250 MG, 2X/DAY
     Route: 048
     Dates: start: 201212
  2. XALKORI [Suspect]
     Dosage: 200 MG, 2X/DAY
     Route: 048
     Dates: start: 20121208
  3. ACETYLSALICYLIC ACID [Concomitant]
     Dosage: 81 MG, 1X/DAY (QD)
     Route: 048
  4. CARVEDILOL [Concomitant]
     Dosage: 18.75 MG, 2X/DAY
     Route: 048
  5. CARVEDILOL [Concomitant]
     Dosage: 25 MG, 2X/DAY
     Route: 048
  6. LEVOTHYROXINE [Concomitant]
     Dosage: UNK
  7. AMLODIPINE [Concomitant]
     Dosage: 5 MG, 1X/DAY (QD)
     Route: 048
  8. FUROSEMIDE [Concomitant]
     Dosage: UNK
  9. RANITIDINE [Concomitant]
     Dosage: 150 MG, 2X/DAY
     Route: 048
  10. ATIVAN [Concomitant]
     Dosage: 0.5 MG, EVERY 4 HRS (PRN N/V/ANX/SLEEP)
     Route: 048

REACTIONS (11)
  - Dyspnoea [Unknown]
  - Diaphragm muscle weakness [Unknown]
  - Hypoaesthesia [Unknown]
  - Muscle spasms [Unknown]
  - Pruritus [Unknown]
  - Oedema [Recovered/Resolved]
  - Diarrhoea [Recovered/Resolved]
  - Oedema peripheral [Unknown]
  - Abdominal pain upper [Unknown]
  - Orthopnoea [Unknown]
  - Fluid retention [Unknown]
